FAERS Safety Report 17646547 (Version 1)
Quarter: 2020Q2

REPORT INFORMATION
  Report Type: Spontaneous
  Country: US (occurrence: US)
  Receive Date: 20200408
  Receipt Date: 20200408
  Transmission Date: 20200713
  Serious: No
  Sender: FDA-Public Use
  Company Number: US-VERTEX PHARMACEUTICALS-2020-006714

PATIENT
  Age: 18 Year
  Sex: Male

DRUGS (1)
  1. TRIKAFTA [Suspect]
     Active Substance: ELEXACAFTOR\IVACAFTOR\TEZACAFTOR
     Indication: CYSTIC FIBROSIS
     Dosage: 2 TABS IN MORNING, 1 TAB IN THE EVENING, BID, RESPIRATORY (INHALATION)
     Route: 055
     Dates: start: 20191211

REACTIONS (1)
  - Mucosal discolouration [Recovered/Resolved]

NARRATIVE: CASE EVENT DATE: 20191218
